FAERS Safety Report 8128989-8 (Version None)
Quarter: 2012Q1

REPORT INFORMATION
  Report Type: 
  Country: None (occurrence: None)
  Receive Date: 20120210
  Receipt Date: 20110727
  Transmission Date: 20120608
  Serious: No
  Sender: FDA-Public Use
  Company Number: US-BRISTOL-MYERS SQUIBB COMPANY-15933559

PATIENT
  Age: 39 Year
  Sex: Female

DRUGS (1)
  1. ORENCIA [Suspect]

REACTIONS (2)
  - RASH [None]
  - DIZZINESS [None]
